FAERS Safety Report 12978293 (Version 2)
Quarter: 2017Q1

REPORT INFORMATION
  Report Type: Spontaneous
  Country: AM (occurrence: AM)
  Receive Date: 20161128
  Receipt Date: 20170215
  Transmission Date: 20170428
  Serious: Yes (Other)
  Sender: FDA-Public Use
  Company Number: AM-JNJFOC-20161121299

PATIENT
  Age: 61 Year
  Sex: Male

DRUGS (13)
  1. BEDAQUILINE [Suspect]
     Active Substance: BEDAQUILINE
     Indication: PULMONARY TUBERCULOSIS
     Dosage: 400/200 UNIT
     Route: 048
     Dates: start: 20150716, end: 20160716
  2. CAPREOMYCIN [Suspect]
     Active Substance: CAPREOMYCIN
     Indication: PULMONARY TUBERCULOSIS
     Route: 065
     Dates: start: 20160129
  3. IMIPENEM [Suspect]
     Active Substance: IMIPENEM
     Indication: PULMONARY TUBERCULOSIS
     Dosage: 2000 UNITS
     Route: 065
     Dates: start: 20150716
  4. IMIPENEM [Suspect]
     Active Substance: IMIPENEM
     Indication: PULMONARY TUBERCULOSIS
     Route: 065
     Dates: start: 20160129
  5. VITAMIN B6 [Concomitant]
     Active Substance: PYRIDOXINE HYDROCHLORIDE
     Route: 065
  6. INSULIN [Concomitant]
     Active Substance: INSULIN NOS
     Route: 065
  7. LINEZOLID. [Suspect]
     Active Substance: LINEZOLID
     Indication: PULMONARY TUBERCULOSIS
     Dosage: 1000 UNITS
     Route: 065
     Dates: start: 20150716, end: 20160129
  8. CLOFAZIMINE [Suspect]
     Active Substance: CLOFAZIMINE
     Indication: PULMONARY TUBERCULOSIS
     Dosage: 200/ 100 UNIT
     Route: 065
     Dates: start: 20150716
  9. CLOFAZIMINE [Suspect]
     Active Substance: CLOFAZIMINE
     Indication: PULMONARY TUBERCULOSIS
     Route: 065
     Dates: start: 20160129
  10. AMOXICILLIN/CLAVULANIC ACID [Suspect]
     Active Substance: AMOXICILLIN\CLAVULANIC ACID
     Indication: PULMONARY TUBERCULOSIS
     Dosage: 2000 UNITS
     Route: 065
     Dates: start: 20150716
  11. CYCLOSERINE. [Suspect]
     Active Substance: CYCLOSERINE
     Indication: PULMONARY TUBERCULOSIS
     Dosage: 750 UNITS
     Route: 065
     Dates: start: 20150716, end: 20160111
  12. AMOXICILLIN/CLAVULANIC ACID [Suspect]
     Active Substance: AMOXICILLIN\CLAVULANIC ACID
     Indication: PULMONARY TUBERCULOSIS
     Route: 065
     Dates: start: 20160129
  13. CAPREOMYCIN [Suspect]
     Active Substance: CAPREOMYCIN
     Indication: PULMONARY TUBERCULOSIS
     Route: 065
     Dates: start: 20150716

REACTIONS (5)
  - Neuropathy peripheral [Unknown]
  - Pancoast^s tumour [Not Recovered/Not Resolved]
  - Incorrect drug administration duration [Unknown]
  - Off label use [Unknown]
  - Chest pain [Unknown]

NARRATIVE: CASE EVENT DATE: 20150716
